FAERS Safety Report 8957714 (Version 4)
Quarter: 2013Q1

REPORT INFORMATION
  Report Type: Spontaneous
  Country: PT (occurrence: PT)
  Receive Date: 20121211
  Receipt Date: 20130212
  Transmission Date: 20140127
  Serious: Yes (Death, Hospitalization, Other)
  Sender: FDA-Public Use
  Company Number: PT-ROCHE-1162796

PATIENT
  Age: 81 Year
  Sex: Male

DRUGS (4)
  1. MABTHERA [Suspect]
     Indication: LYMPHOCYTIC LEUKAEMIA
     Route: 065
     Dates: start: 20120703, end: 20120724
  2. MABTHERA [Suspect]
     Indication: CHRONIC LYMPHOCYTIC LEUKAEMIA
     Route: 065
     Dates: start: 20120710
  3. MABTHERA [Suspect]
     Indication: PROLYMPHOCYTIC LEUKAEMIA
     Route: 065
     Dates: start: 20120717
  4. MABTHERA [Suspect]
     Indication: LYMPHOCYTIC LYMPHOMA
     Route: 065
     Dates: start: 20120724

REACTIONS (3)
  - Hepatitis B [Fatal]
  - Hepatitis acute [Fatal]
  - Jaundice [Unknown]
